FAERS Safety Report 5108163-X (Version None)
Quarter: 2006Q3

REPORT INFORMATION
  Report Type: 
  Country: None (occurrence: None)
  Receive Date: 20060915
  Receipt Date: 20060901
  Transmission Date: 20061208
  Serious: Yes (Hospitalization, Other)
  Sender: FDA-Public Use
  Company Number: 2006US-03649

PATIENT
  Age: 10 Month
  Sex: Female

DRUGS (1)
  1. AMOXICILLIN + CLAVULANATE POTASSIUM [Suspect]

REACTIONS (5)
  - HAEMATURIA [None]
  - NEPHRITIS INTERSTITIAL [None]
  - PERITONEAL DIALYSIS [None]
  - RENAL FAILURE ACUTE [None]
  - RENAL IMPAIRMENT [None]
